FAERS Safety Report 8953192 (Version 1)
Quarter: 2012Q4

REPORT INFORMATION
  Report Type: 
  Country: US (occurrence: US)
  Receive Date: 20121206
  Receipt Date: 20121206
  Transmission Date: 20130627
  Serious: No
  Sender: FDA-Public Use
  Company Number: US-009507513-1212USA001125

PATIENT
  Sex: Female

DRUGS (1)
  1. CANCIDAS [Suspect]
     Dosage: UNK

REACTIONS (2)
  - Accidental exposure to product [Unknown]
  - Eyelid irritation [Unknown]
